FAERS Safety Report 20933900 (Version 4)
Quarter: 2023Q1

REPORT INFORMATION
  Report Type: Spontaneous
  Country: US (occurrence: US)
  Receive Date: 20220608
  Receipt Date: 20230321
  Transmission Date: 20230417
  Serious: No
  Sender: FDA-Public Use
  Company Number: US-PFIZER INC-202200796872

PATIENT
  Age: 41 Year
  Sex: Female
  Weight: 82.1 kg

DRUGS (6)
  1. XELJANZ XR [Suspect]
     Active Substance: TOFACITINIB CITRATE
     Indication: Rheumatoid arthritis
     Dosage: 11 MG, 1X/DAY
     Route: 048
     Dates: start: 202202
  2. IBUPROFEN [Concomitant]
     Active Substance: IBUPROFEN
     Indication: Rheumatoid arthritis
     Dosage: 800 MG, DAILY
     Dates: start: 2011
  3. PREDNISONE [Concomitant]
     Active Substance: PREDNISONE
     Indication: Inflammation
     Dosage: OFF AND ON FOR 4 OR 5 YEARS
  4. PREDNISONE [Concomitant]
     Active Substance: PREDNISONE
     Indication: Fluid retention
  5. FAMOTIDINE [Concomitant]
     Active Substance: FAMOTIDINE
     Indication: Abdominal discomfort
     Dosage: UNK
     Dates: start: 202202
  6. DUEXIS [Concomitant]
     Active Substance: FAMOTIDINE\IBUPROFEN
     Dosage: UNK

REACTIONS (10)
  - Condition aggravated [Not Recovered/Not Resolved]
  - General physical health deterioration [Not Recovered/Not Resolved]
  - Product dose omission in error [Unknown]
  - Mental disorder [Unknown]
  - Pain in extremity [Unknown]
  - Inflammation [Unknown]
  - Hypokinesia [Unknown]
  - Limb discomfort [Unknown]
  - Intentional product misuse [Unknown]
  - Arthralgia [Not Recovered/Not Resolved]
